FAERS Safety Report 8241260-9 (Version None)
Quarter: 2012Q1

REPORT INFORMATION
  Report Type: 
  Country: None (occurrence: None)
  Receive Date: 20120328
  Receipt Date: 20120322
  Transmission Date: 20120608
  Serious: Yes (Other)
  Sender: FDA-Public Use
  Company Number: US-PFIZER INC-2012075343

PATIENT
  Sex: Female
  Weight: 60.8 kg

DRUGS (7)
  1. PROZAC [Suspect]
     Indication: DEPRESSION
     Dosage: 10 MG, DAILY
  2. PROZAC [Suspect]
     Dosage: 20 MG, DAILY
  3. PREMARIN [Suspect]
     Indication: VAGINAL DISORDER
  4. PREVACID [Suspect]
     Indication: GASTROOESOPHAGEAL REFLUX DISEASE
     Dosage: 30 MG, DAILY
     Route: 048
  5. PREMARIN [Suspect]
     Indication: NEURALGIA
     Dosage: 0.3MG DAILY IN SUMMER AND 0.45MG DAILY IN WINTER
     Route: 048
  6. PREMARIN [Suspect]
     Indication: HYSTERECTOMY
     Dosage: UNK
     Route: 048
  7. PREMARIN [Suspect]
     Indication: SKIN DISORDER

REACTIONS (5)
  - DEPRESSION [None]
  - VISION BLURRED [None]
  - ATTENTION DEFICIT/HYPERACTIVITY DISORDER [None]
  - SLOW SPEECH [None]
  - DRUG DOSE OMISSION [None]
